FAERS Safety Report 7418360-6 (Version None)
Quarter: 2011Q2

REPORT INFORMATION
  Report Type: 
  Country: None (occurrence: None)
  Receive Date: 20110415
  Receipt Date: 20110411
  Transmission Date: 20111010
  Serious: Yes (Death, Life-Threatening)
  Sender: FDA-Public Use
  Company Number: B0689456A

PATIENT
  Sex: Female
  Weight: 40 kg

DRUGS (38)
  1. METHOTREXATE [Concomitant]
     Dosage: 10MG PER DAY
     Route: 065
     Dates: start: 20010828, end: 20010828
  2. METHYCOBAL [Concomitant]
     Dosage: 1500MCG PER DAY
     Route: 048
     Dates: start: 19930101
  3. URSO 250 [Concomitant]
     Dosage: 600MG PER DAY
     Route: 048
     Dates: start: 19970101
  4. VANCOMYCIN HYDROCHLORIDE [Concomitant]
     Dosage: 1.5G PER DAY
     Route: 048
     Dates: start: 20010816
  5. FUNGIZONE [Concomitant]
     Dosage: 1200MG PER DAY
     Route: 048
     Dates: start: 20010816
  6. MEROPEN [Concomitant]
     Dosage: 2G PER DAY
     Route: 042
     Dates: start: 20010831
  7. DALACIN [Suspect]
     Route: 048
  8. AZACTAM [Suspect]
     Route: 065
  9. PREMARIN [Concomitant]
     Dosage: .625MG PER DAY
     Route: 048
     Dates: start: 20010801
  10. LAMIVUDINE(PEPFAR) [Concomitant]
     Dosage: 100MG PER DAY
     Route: 048
     Dates: start: 20010810
  11. ISONIAZID [Concomitant]
     Dosage: 300MG PER DAY
     Route: 048
     Dates: start: 20010816
  12. ZOVIRAX [Concomitant]
     Dosage: 1000MG PER DAY
     Route: 048
     Dates: start: 20010913
  13. SELBEX [Concomitant]
     Dosage: 150MG PER DAY
     Route: 048
     Dates: start: 20010816
  14. CRAVIT [Concomitant]
     Dosage: 300MG PER DAY
     Route: 048
     Dates: start: 20010816
  15. RENIVACE [Concomitant]
     Dosage: 2.5MG PER DAY
     Route: 048
     Dates: start: 20010914
  16. DIFLUCAN [Concomitant]
     Dosage: 200MG PER DAY
     Route: 048
     Dates: start: 20010913
  17. ALKERAN [Suspect]
     Indication: ALLOGENIC BONE MARROW TRANSPLANTATION THERAPY
     Dosage: 135MG PER DAY
     Route: 042
     Dates: start: 20010819, end: 20010820
  18. UNKNOWN DRUG [Concomitant]
     Indication: ALLOGENIC BONE MARROW TRANSPLANTATION THERAPY
     Route: 065
     Dates: start: 20010813, end: 20010813
  19. MINOMYCIN [Concomitant]
     Dosage: 200MG PER DAY
     Route: 042
     Dates: start: 20010829
  20. MONILAC [Concomitant]
     Route: 048
     Dates: start: 20010913
  21. MIRACLID [Suspect]
     Route: 042
  22. UNKNOWN DRUG [Concomitant]
     Dosage: 300MG PER DAY
     Route: 048
     Dates: start: 20010801
  23. ZOVIRAX [Concomitant]
     Dosage: 500MG PER DAY
     Route: 042
     Dates: start: 20010825
  24. MAXIPIME [Concomitant]
     Dosage: 4G PER DAY
     Route: 042
     Dates: start: 20010826
  25. DIFLUCAN [Concomitant]
     Dosage: 400MG PER DAY
     Route: 042
     Dates: start: 20010901
  26. POLYMYXIN-B-SULFATE [Concomitant]
     Dosage: 6IUAX PER DAY
     Route: 048
     Dates: start: 20010906
  27. UNKNOWN DRUG [Concomitant]
     Route: 065
     Dates: start: 20010816, end: 20010816
  28. NEU-UP [Concomitant]
     Dosage: 300MCG PER DAY
     Route: 042
     Dates: start: 20010827, end: 20010909
  29. METHOTREXATE [Concomitant]
     Indication: IMMUNOSUPPRESSION
     Dosage: 15MG PER DAY
     Route: 065
     Dates: start: 20010823, end: 20010823
  30. CYCLOSPORINE [Concomitant]
     Dosage: 3MGK PER DAY
     Route: 065
     Dates: start: 20010821, end: 20010929
  31. APLACE [Concomitant]
     Dosage: 300MG PER DAY
     Route: 048
     Dates: start: 19930101
  32. JUVELA N [Concomitant]
     Dosage: 300MG PER DAY
     Route: 048
     Dates: start: 19970101
  33. KAYTWO [Concomitant]
     Dosage: 60ML PER DAY
     Route: 048
     Dates: start: 20010913
  34. FLUDARABINE PHOSPHATE [Concomitant]
     Indication: ALLOGENIC BONE MARROW TRANSPLANTATION THERAPY
     Dosage: 45MGM2 PER DAY
     Route: 042
     Dates: start: 20010816, end: 20010820
  35. METHOTREXATE [Concomitant]
     Dosage: 10MG PER DAY
     Route: 065
     Dates: start: 20010825, end: 20010825
  36. ZOVIRAX [Concomitant]
     Dosage: 1000MG PER DAY
     Route: 048
     Dates: start: 20010816
  37. PENTCILLIN [Concomitant]
     Dosage: 8G PER DAY
     Dates: start: 20010905
  38. FRAGMIN [Concomitant]
     Dosage: 4IU3 PER DAY
     Route: 042
     Dates: start: 20010914

REACTIONS (4)
  - CIRCULATORY COLLAPSE [None]
  - HEPATITIS B [None]
  - MULTI-ORGAN FAILURE [None]
  - REYE'S SYNDROME [None]
